FAERS Safety Report 5147395-1 (Version None)
Quarter: 2006Q4

REPORT INFORMATION
  Report Type: 
  Country: None (occurrence: None)
  Receive Date: 20061106
  Receipt Date: 20061025
  Transmission Date: 20070319
  Serious: Yes (Hospitalization)
  Sender: FDA-Public Use
  Company Number: 2006BH014335

PATIENT
  Age: 45 Year
  Sex: Female

DRUGS (1)
  1. HYDROXYZINE [Suspect]
     Indication: PRURITUS
     Dosage: 25 MG; IM
     Route: 030

REACTIONS (12)
  - CELLULITIS [None]
  - ERYTHEMA [None]
  - FAT NECROSIS [None]
  - GAIT DISTURBANCE [None]
  - HAEMORRHAGE [None]
  - INJECTION SITE PAIN [None]
  - MUSCLE NECROSIS [None]
  - MYOSITIS [None]
  - NECROSIS [None]
  - SKIN DISCOLOURATION [None]
  - SOFT TISSUE NECROSIS [None]
  - STAPHYLOCOCCAL INFECTION [None]
